FAERS Safety Report 16312071 (Version 2)
Quarter: 2019Q2

REPORT INFORMATION
  Report Type: Spontaneous
  Country: IT (occurrence: IT)
  Receive Date: 20190515
  Receipt Date: 20190522
  Transmission Date: 20190711
  Serious: Yes (Life-Threatening, Hospitalization, Other)
  Sender: FDA-Public Use
  Company Number: IT-LUPIN PHARMACEUTICALS INC.-2019-02939

PATIENT
  Age: 27 Year
  Sex: Female

DRUGS (1)
  1. QUETIAPINE FUMARATE EXTENDED-RELEASE TABLETS, 300 MG [Suspect]
     Active Substance: QUETIAPINE FUMARATE
     Indication: SUICIDE ATTEMPT
     Dosage: 15 GRAM ((50 EXTENDED-RELEASE 300 MG TABLETS)
     Route: 048

REACTIONS (6)
  - Lactic acidosis [Recovered/Resolved]
  - Mental status changes [Unknown]
  - Sinus tachycardia [Recovered/Resolved]
  - Seizure [Unknown]
  - Agitation [Recovered/Resolved with Sequelae]
  - Intentional overdose [Recovered/Resolved]
